FAERS Safety Report 15844334 (Version 2)
Quarter: 2019Q1

REPORT INFORMATION
  Report Type: Spontaneous
  Country: DE (occurrence: DE)
  Receive Date: 20190118
  Receipt Date: 20190211
  Transmission Date: 20190417
  Serious: Yes (Hospitalization)
  Sender: FDA-Public Use
  Company Number: DE-CELGENEUS-DEU-20190104595

PATIENT
  Age: 63 Year
  Sex: Male

DRUGS (7)
  1. AZACITIDINE INJECTABLE [Suspect]
     Active Substance: AZACITIDINE
     Indication: MYELODYSPLASTIC SYNDROME
     Dosage: 75 MILLIGRAM/SQ. METER
     Route: 058
     Dates: start: 201612
  2. ERYTHROCYTES [Concomitant]
     Active Substance: HUMAN RED BLOOD CELL
     Indication: ANAEMIA
     Route: 065
     Dates: start: 201612
  3. DEFERASIROX. [Concomitant]
     Active Substance: DEFERASIROX
     Indication: MYELODYSPLASTIC SYNDROME
     Route: 065
     Dates: start: 201702
  4. AZACITIDINE INJECTABLE [Suspect]
     Active Substance: AZACITIDINE
     Route: 065
     Dates: start: 201901
  5. AZACITIDINE INJECTABLE [Suspect]
     Active Substance: AZACITIDINE
     Route: 065
     Dates: start: 201704
  6. AZACITIDINE INJECTABLE [Suspect]
     Active Substance: AZACITIDINE
     Route: 065
     Dates: start: 201810
  7. AZACITIDINE INJECTABLE [Suspect]
     Active Substance: AZACITIDINE
     Route: 065
     Dates: start: 201702

REACTIONS (1)
  - Amaurosis fugax [Recovered/Resolved]

NARRATIVE: CASE EVENT DATE: 20181225
